FAERS Safety Report 15901998 (Version 1)
Quarter: 2019Q1

REPORT INFORMATION
  Report Type: Report from Study
  Country: MX (occurrence: MX)
  Receive Date: 20190201
  Receipt Date: 20190201
  Transmission Date: 20190417
  Serious: Yes (Death)
  Sender: FDA-Public Use
  Company Number: PHHY2019MX023155

PATIENT
  Sex: Female
  Weight: 59 kg

DRUGS (3)
  1. EXFORGE HCT [Suspect]
     Active Substance: AMLODIPINE BESYLATE\HYDROCHLOROTHIAZIDE\VALSARTAN
     Indication: HYPERTENSION
     Dosage: 1 DF, QD (AMLODIPINE 5 MG, HYDROCHLOROTHIAZIDE 12.5MG, VALSARTAN 160MG)
     Route: 048
  2. INSULIN [Concomitant]
     Active Substance: INSULIN NOS
     Indication: DIABETES MELLITUS
     Dosage: 6 IU, QD
     Route: 059
  3. LASIX [Concomitant]
     Active Substance: FUROSEMIDE
     Indication: URINE OUTPUT DECREASED
     Dosage: 0.5 DF, QD
     Route: 048

REACTIONS (3)
  - Hypertension [Fatal]
  - Diabetic complication [Fatal]
  - Renal failure [Fatal]
